FAERS Safety Report 4931091-7 (Version None)
Quarter: 2006Q1

REPORT INFORMATION
  Report Type: 
  Country: None (occurrence: None)
  Receive Date: 20060227
  Receipt Date: 20060215
  Transmission Date: 20060701
  Serious: Yes (Death)
  Sender: FDA-Public Use
  Company Number: 2006024824

PATIENT
  Age: 54 Year
  Sex: Male

DRUGS (1)
  1. LUSTRAL (SERTRALINE) [Suspect]
     Indication: ILL-DEFINED DISORDER

REACTIONS (4)
  - ANTIDEPRESSANT DRUG LEVEL INCREASED [None]
  - BLOOD ALKALINE PHOSPHATASE INCREASED [None]
  - FALL [None]
  - INJURY [None]
